FAERS Safety Report 16744312 (Version 1)
Quarter: 2019Q3

REPORT INFORMATION
  Report Type: Spontaneous
  Country: NL (occurrence: NL)
  Receive Date: 20190827
  Receipt Date: 20190827
  Transmission Date: 20191005
  Serious: Yes (Hospitalization)
  Sender: FDA-Public Use
  Company Number: NL-SUN PHARMACEUTICAL INDUSTRIES LTD-2019RR-218896

PATIENT
  Sex: Female
  Weight: 54 kg

DRUGS (1)
  1. CLARITHROMYCIN. [Suspect]
     Active Substance: CLARITHROMYCIN
     Indication: PNEUMONIA
     Dosage: 2X PER DAG
     Route: 050
     Dates: start: 20190719, end: 20190726

REACTIONS (1)
  - Pharyngeal swelling [Recovering/Resolving]
